FAERS Safety Report 9281739 (Version 1)
Quarter: 2013Q2

REPORT INFORMATION
  Report Type: Spontaneous
  Country: NL (occurrence: NL)
  Receive Date: 20130510
  Receipt Date: 20130510
  Transmission Date: 20140414
  Serious: Yes (Other)
  Sender: FDA-Public Use
  Company Number: NL-B.I. PHARMACEUTICALS,INC./RIDGEFIELD-2013-BI-10277YA

PATIENT
  Age: 82 Year
  Sex: Male
  Weight: 95 kg

DRUGS (2)
  1. TAMSULOSINA [Suspect]
     Indication: URINARY TRACT DISORDER
     Dosage: 0.4 MG
     Route: 065
     Dates: start: 2008
  2. INSULIN (INSULIN) [Concomitant]

REACTIONS (4)
  - Gait disturbance [Recovered/Resolved]
  - Chills [Recovered/Resolved]
  - Dizziness [Recovered/Resolved]
  - Withdrawal syndrome [Recovered/Resolved]
